FAERS Safety Report 9537402 (Version 3)
Quarter: 2013Q4

REPORT INFORMATION
  Report Type: Report from Study
  Country: FR (occurrence: FR)
  Receive Date: 20130919
  Receipt Date: 20131025
  Transmission Date: 20140711
  Serious: Yes (Hospitalization)
  Sender: FDA-Public Use
  Company Number: PHHY2013FR097280

PATIENT
  Age: 63 Year
  Sex: Male

DRUGS (6)
  1. NEORAL [Suspect]
     Indication: PROPHYLAXIS AGAINST TRANSPLANT REJECTION
     Dosage: 250 MG, QD
     Route: 048
     Dates: start: 20110719
  2. NEORAL [Suspect]
     Indication: IMMUNOSUPPRESSION
  3. MYFORTIC [Suspect]
     Indication: IMMUNOSUPPRESSION
     Dates: start: 20111001
  4. MYFORTIC [Suspect]
     Indication: PROPHYLAXIS AGAINST TRANSPLANT REJECTION
  5. CORTANCYL [Suspect]
     Indication: TRANSPLANT REJECTION
     Dosage: 7.5 MG, QD
     Route: 048
     Dates: start: 20111118
  6. CORTANCYL [Suspect]
     Indication: IMMUNOSUPPRESSION

REACTIONS (2)
  - Hypertension [Unknown]
  - Hernial eventration [Recovered/Resolved]
